FAERS Safety Report 6383185-X (Version None)
Quarter: 2009Q3

REPORT INFORMATION
  Report Type: 
  Country: None (occurrence: None)
  Receive Date: 20090929
  Receipt Date: 20090916
  Transmission Date: 20100115
  Serious: Yes (Other)
  Sender: FDA-Public Use
  Company Number: 2009AP003807

PATIENT
  Sex: Female

DRUGS (2)
  1. DILT-CD [Suspect]
  2. DILTIAZEM [Concomitant]

REACTIONS (3)
  - HEAD DISCOMFORT [None]
  - MAJOR DEPRESSION [None]
  - PRODUCT SUBSTITUTION ISSUE [None]
